FAERS Safety Report 9150052 (Version 1)
Quarter: 2013Q1

REPORT INFORMATION
  Report Type: Spontaneous
  Country: US (occurrence: None)
  Receive Date: 20130304
  Receipt Date: 20130304
  Transmission Date: 20140127
  Serious: No
  Sender: FDA-Public Use
  Company Number: None

PATIENT
  Sex: 0

DRUGS (1)
  1. ESCITALOPRAM [Suspect]
     Indication: ANXIETY
     Dates: start: 20120701, end: 20120721

REACTIONS (7)
  - No therapeutic response [None]
  - Product substitution issue [None]
  - Memory impairment [None]
  - Agitation [None]
  - Anxiety [None]
  - Economic problem [None]
  - Drug effect decreased [None]
